FAERS Safety Report 22989302 (Version 3)
Quarter: 2023Q4

REPORT INFORMATION
  Report Type: Other
  Country: US (occurrence: None)
  Receive Date: 20230927
  Receipt Date: 20231215
  Transmission Date: 20240110
  Serious: No
  Sender: FDA-Public Use
  Company Number: US-ROCHE-3425916

PATIENT
  Age: 62 Year
  Sex: Female
  Weight: 95.34 kg

DRUGS (5)
  1. OCREVUS [Suspect]
     Active Substance: OCRELIZUMAB
     Indication: Primary progressive multiple sclerosis
     Dosage: (PRESCRIBED AS: INFUSE 600MG INTRAVENOUSLY EVERY 6 MONTH (S))
     Route: 042
     Dates: end: 20221110
  2. BETASERON [Concomitant]
     Active Substance: INTERFERON BETA-1B
  3. GABAPENTIN [Concomitant]
     Active Substance: GABAPENTIN
     Dosage: ORAL TABLET 600 MG TAKE ONE TABLET UP TO SIX TIMES DAILY AS NEEDED
     Dates: start: 2008
  4. BACLOFEN [Concomitant]
     Active Substance: BACLOFEN
     Dosage: TAKE 10 MILLIGRAMS TWICE DAILY; MORNING AND AFTERNOON, ORAL TABLET
     Dates: start: 2008
  5. VANCOMYCIN [Concomitant]
     Active Substance: VANCOMYCIN

REACTIONS (2)
  - Clostridium difficile infection [Recovered/Resolved]
  - Infection [Recovered/Resolved]

NARRATIVE: CASE EVENT DATE: 20230101
